FAERS Safety Report 19475299 (Version 5)
Quarter: 2021Q3

REPORT INFORMATION
  Report Type: Report from Study
  Country: US (occurrence: US)
  Receive Date: 20210629
  Receipt Date: 20210921
  Transmission Date: 20211014
  Serious: Yes (Hospitalization, Other)
  Sender: FDA-Public Use
  Company Number: US-JNJFOC-20210329851

PATIENT
  Age: 76 Year
  Sex: Female
  Weight: 122.3 kg

DRUGS (13)
  1. MACITENTAN [Suspect]
     Active Substance: MACITENTAN
     Route: 048
     Dates: start: 20210120
  2. SELEXIPAG [Suspect]
     Active Substance: SELEXIPAG
     Route: 048
     Dates: start: 20210215
  3. ELIQUIS [Concomitant]
     Active Substance: APIXABAN
     Indication: PRODUCT USED FOR UNKNOWN INDICATION
  4. MACITENTAN [Suspect]
     Active Substance: MACITENTAN
     Route: 048
     Dates: start: 20210115
  5. TADALAFIL. [Concomitant]
     Active Substance: TADALAFIL
     Indication: PULMONARY ARTERIAL HYPERTENSION
     Route: 048
  6. MACITENTAN [Suspect]
     Active Substance: MACITENTAN
     Indication: PULMONARY ARTERIAL HYPERTENSION
     Route: 048
     Dates: start: 20210125
  7. SELEXIPAG [Suspect]
     Active Substance: SELEXIPAG
     Dosage: IN EVENING
     Route: 048
  8. SELEXIPAG [Suspect]
     Active Substance: SELEXIPAG
     Route: 048
     Dates: end: 20210522
  9. SELEXIPAG [Suspect]
     Active Substance: SELEXIPAG
     Indication: PULMONARY ARTERIAL HYPERTENSION
     Route: 048
     Dates: start: 20210312
  10. SELEXIPAG [Suspect]
     Active Substance: SELEXIPAG
     Dosage: MORNING
     Route: 048
  11. SELEXIPAG [Suspect]
     Active Substance: SELEXIPAG
     Route: 048
     Dates: start: 20210315, end: 20210527
  12. MACITENTAN [Suspect]
     Active Substance: MACITENTAN
     Route: 048
  13. SELEXIPAG [Suspect]
     Active Substance: SELEXIPAG
     Route: 048
     Dates: end: 20210527

REACTIONS (22)
  - Nausea [Unknown]
  - Hip fracture [Recovering/Resolving]
  - Insomnia [Recovering/Resolving]
  - Pain [Unknown]
  - Decreased appetite [Recovering/Resolving]
  - Peripheral swelling [Recovering/Resolving]
  - Dyspnoea exertional [Unknown]
  - Malaise [Not Recovered/Not Resolved]
  - Headache [Not Recovered/Not Resolved]
  - Back pain [Unknown]
  - Myalgia [Unknown]
  - Bladder disorder [Not Recovered/Not Resolved]
  - Fall [Recovering/Resolving]
  - Product dose omission issue [Unknown]
  - Drug ineffective [Unknown]
  - Swelling [Unknown]
  - Diarrhoea [Recovering/Resolving]
  - Multiple allergies [Unknown]
  - Balance disorder [Unknown]
  - Surgery [Unknown]
  - Pain in extremity [Not Recovered/Not Resolved]
  - Nasal congestion [Not Recovered/Not Resolved]

NARRATIVE: CASE EVENT DATE: 20210128
